FAERS Safety Report 8355676-3 (Version None)
Quarter: 2012Q2

REPORT INFORMATION
  Report Type: 
  Country: None (occurrence: None)
  Receive Date: 20120514
  Receipt Date: 20120504
  Transmission Date: 20120825
  Serious: Yes (Hospitalization)
  Sender: FDA-Public Use
  Company Number: DE-BIOGENIDEC-2012BI015816

PATIENT
  Age: 36 Year
  Sex: Male
  Weight: 66 kg

DRUGS (1)
  1. AVONEX [Suspect]
     Indication: MULTIPLE SCLEROSIS
     Route: 030
     Dates: start: 20110822

REACTIONS (4)
  - VOMITING [None]
  - CHOLECYSTECTOMY [None]
  - NAUSEA [None]
  - DIARRHOEA [None]
